FAERS Safety Report 16235744 (Version 23)
Quarter: 2021Q2

REPORT INFORMATION
  Report Type: Report from Study
  Country: HU (occurrence: HU)
  Receive Date: 20190424
  Receipt Date: 20210525
  Transmission Date: 20210716
  Serious: Yes (Other)
  Sender: FDA-Public Use
  Company Number: HU-INCYTE CORPORATION-2019IN003418

PATIENT

DRUGS (38)
  1. JAKAVI [Suspect]
     Active Substance: RUXOLITINIB
     Dosage: 10 OT
     Route: 048
     Dates: start: 20190402, end: 20190905
  2. ESOMEPRAZOLE. [Concomitant]
     Active Substance: ESOMEPRAZOLE MAGNESIUM
     Indication: ANTACID THERAPY
     Dosage: 40 MG
     Route: 065
     Dates: start: 20160114
  3. LITALIR [Concomitant]
     Active Substance: HYDROXYUREA
     Dosage: 500 OT
     Route: 065
     Dates: start: 20181120, end: 20181218
  4. VENTOLIN [Concomitant]
     Active Substance: ALBUTEROL SULFATE
     Indication: ASTHMA
     Dosage: UNK
     Route: 065
     Dates: start: 19900101
  5. PANTOPRAZOL [PANTOPRAZOLE SODIUM SESQUIHYDRATE] [Concomitant]
     Active Substance: PANTOPRAZOLE SODIUM
     Indication: GASTRITIS EROSIVE
  6. STEROFUNDIN B [Concomitant]
     Indication: ENTERITIS
     Dosage: 500
     Route: 065
     Dates: start: 20201111, end: 20201111
  7. LITALIR [Concomitant]
     Active Substance: HYDROXYUREA
     Dosage: 500 OT
     Route: 065
     Dates: start: 20181016, end: 20181119
  8. ASPIRIN [ACETYLSALICYLIC ACID] [Concomitant]
     Active Substance: ASPIRIN
     Indication: THROMBOSIS PROPHYLAXIS
     Dosage: 100 OT
     Route: 065
     Dates: start: 20170912
  9. AMOXICILLIN. [Concomitant]
     Active Substance: AMOXICILLIN
     Indication: PNEUMONIA
     Dosage: 300, OT
     Route: 065
     Dates: start: 20200926, end: 20201014
  10. KLION [METRONIDAZOLE] [Concomitant]
     Active Substance: METRONIDAZOLE
     Indication: ENTERITIS
     Dosage: 500
     Route: 065
     Dates: start: 20201120, end: 20201126
  11. FURON [FUROSEMIDE] [Concomitant]
     Active Substance: FUROSEMIDE
     Indication: HYDROTHORAX
     Dosage: 40
     Route: 065
     Dates: start: 20200924
  12. AMLODIPINE [Concomitant]
     Active Substance: AMLODIPINE BESYLATE
     Dosage: 5 OT
     Route: 065
     Dates: start: 20200925
  13. LITALIR [Concomitant]
     Active Substance: HYDROXYUREA
     Dosage: 1000 OT
     Route: 065
     Dates: start: 20181219, end: 20190103
  14. SYMBICORT [Concomitant]
     Active Substance: BUDESONIDE\FORMOTEROL FUMARATE DIHYDRATE
     Indication: ASTHMA
     Dosage: 4.5 OT
     Route: 065
     Dates: start: 19900101
  15. DHC CONTINUS [Concomitant]
     Active Substance: DIHYDROCODEINE BITARTRATE
     Indication: ASTHMA
     Dosage: 60 OT
     Route: 065
     Dates: start: 20190618
  16. VANCOMYCIN [Concomitant]
     Active Substance: VANCOMYCIN
     Indication: ENTERITIS
     Dosage: 250
     Route: 065
     Dates: start: 20201111
  17. JAKAVI [Suspect]
     Active Substance: RUXOLITINIB
     Indication: POLYCYTHAEMIA VERA
     Dosage: 20 OT
     Route: 048
     Dates: start: 20190104, end: 20190325
  18. LITALIR [Concomitant]
     Active Substance: HYDROXYUREA
     Indication: POLYCYTHAEMIA VERA
     Dosage: 500 OT
     Route: 065
     Dates: start: 20180410, end: 20181015
  19. RAWEL [Concomitant]
     Active Substance: INDAPAMIDE
     Indication: HYPERTENSION
     Dosage: 1.5 MG
     Route: 065
     Dates: start: 20000101
  20. FUROSEMIDE. [Concomitant]
     Active Substance: FUROSEMIDE
     Dosage: 20 UNK
     Route: 065
     Dates: start: 20201030
  21. VEROSPIRON [Concomitant]
     Active Substance: SPIRONOLACTONE
     Indication: RENAL FAILURE
     Dosage: 25 OT
     Route: 065
     Dates: start: 20200905
  22. AMLODIPINE [Concomitant]
     Active Substance: AMLODIPINE BESYLATE
     Indication: HYPERTENSION
     Dosage: 5 MG
     Route: 065
     Dates: start: 20000101, end: 20200925
  23. PANTOPRAZOL [PANTOPRAZOLE SODIUM SESQUIHYDRATE] [Concomitant]
     Active Substance: PANTOPRAZOLE SODIUM
     Indication: GASTROOESOPHAGEAL REFLUX DISEASE
     Dosage: 20 OT
     Route: 065
     Dates: start: 20200914
  24. JAKAVI [Suspect]
     Active Substance: RUXOLITINIB
     Dosage: 5 OT
     Route: 048
     Dates: start: 20190906, end: 20191129
  25. TOLURA [Concomitant]
     Active Substance: TELMISARTAN
     Dosage: 20
     Route: 065
     Dates: start: 20200905
  26. SYMBICORT [Concomitant]
     Active Substance: BUDESONIDE\FORMOTEROL FUMARATE DIHYDRATE
     Indication: RENAL FAILURE
     Dosage: UNK
     Route: 065
     Dates: start: 20200908
  27. FUROSEMIDE. [Concomitant]
     Active Substance: FUROSEMIDE
     Indication: ATRIAL FIBRILLATION
     Dosage: 5 (PATCH)
     Route: 065
     Dates: start: 20200925, end: 20201014
  28. FURON [FUROSEMIDE] [Concomitant]
     Active Substance: FUROSEMIDE
     Indication: RENAL FAILURE
     Dosage: 40
     Route: 065
     Dates: start: 20200905, end: 20200923
  29. CEFTRIAXON [Concomitant]
     Active Substance: CEFTRIAXONE
     Indication: PNEUMONIA
     Dosage: 2 UNK
     Route: 065
     Dates: start: 20201030, end: 20201030
  30. AZITHROMYCIN ANHYDROUS. [Concomitant]
     Active Substance: AZITHROMYCIN ANHYDROUS
     Indication: PNEUMONIA
     Dosage: 500 UNK
     Route: 065
     Dates: start: 20201030, end: 20201101
  31. JAKAVI [Suspect]
     Active Substance: RUXOLITINIB
     Dosage: 10 OT
     Route: 048
     Dates: start: 20191129, end: 20200925
  32. AMLODIPINE [Concomitant]
     Active Substance: AMLODIPINE BESYLATE
     Dosage: 10 OT
     Route: 065
     Dates: start: 20201014, end: 20201120
  33. CLARITHROMYCINE [Concomitant]
     Active Substance: CLARITHROMYCIN
     Indication: PNEUMONIA
     Dosage: 1000 OT
     Route: 065
     Dates: start: 20200926, end: 20201014
  34. VITAMIN C [Concomitant]
     Active Substance: ASCORBIC ACID
     Indication: INFECTION PROPHYLAXIS
     Dosage: 300 OT
     Route: 065
     Dates: start: 20201120
  35. VITAMIN D [ERGOCALCIFEROL] [Concomitant]
     Active Substance: ERGOCALCIFEROL
     Indication: INFECTION PROPHYLAXIS
     Dosage: 3000 OT
     Route: 065
     Dates: start: 20201120
  36. JAKAVI [Suspect]
     Active Substance: RUXOLITINIB
     Dosage: 10 OT
     Route: 048
     Dates: start: 20190326, end: 20190326
  37. TOLURA [Concomitant]
     Active Substance: TELMISARTAN
     Indication: HYPERTENSION
     Dosage: 80 MG
     Route: 065
     Dates: start: 20000101
  38. ISOLYTE [Concomitant]
     Indication: PNEUMONIA
     Dosage: 500
     Route: 065
     Dates: start: 20201030, end: 20201030

REACTIONS (36)
  - Anaemia [Recovering/Resolving]
  - Arrhythmia [Recovered/Resolved]
  - Lymphadenopathy [Recovered/Resolved]
  - Gastrooesophageal reflux disease [Recovered/Resolved]
  - Anaemia [Recovered/Resolved]
  - Pneumonitis [Recovered/Resolved]
  - Hydrothorax [Recovered/Resolved]
  - Blood creatinine increased [Unknown]
  - Retinal haemorrhage [Recovered/Resolved]
  - Headache [Recovered/Resolved]
  - Monocyte count decreased [Unknown]
  - Neutrophil count increased [Unknown]
  - Blood urea increased [Unknown]
  - Splenomegaly [Not Recovered/Not Resolved]
  - Pleural effusion [Recovered/Resolved]
  - Basophil count increased [Unknown]
  - Hydrothorax [Recovered/Resolved]
  - Headache [Recovered/Resolved]
  - Lymphocyte count decreased [Unknown]
  - Oral herpes [Recovered/Resolved]
  - Polycythaemia [Recovered/Resolved]
  - Visual impairment [Recovered/Resolved]
  - Visual impairment [Recovered/Resolved]
  - Anaemia [Recovered/Resolved]
  - Anaemia [Recovered/Resolved]
  - Fatigue [Not Recovered/Not Resolved]
  - Albumin globulin ratio increased [Unknown]
  - Gastroenteritis clostridial [Recovered/Resolved]
  - Blood lactate dehydrogenase increased [Unknown]
  - Ascites [Recovered/Resolved]
  - Blood calcium decreased [Unknown]
  - Blood potassium increased [Unknown]
  - Gait inability [Unknown]
  - Hepatomegaly [Not Recovered/Not Resolved]
  - Oral herpes [Recovered/Resolved]
  - Polyneuropathy [Recovered/Resolved]

NARRATIVE: CASE EVENT DATE: 20190104
